FAERS Safety Report 15803074 (Version 1)
Quarter: 2019Q1

REPORT INFORMATION
  Report Type: Report from Study
  Country: US (occurrence: US)
  Receive Date: 20190109
  Receipt Date: 20190109
  Transmission Date: 20190417
  Serious: Yes (Hospitalization)
  Sender: FDA-Public Use
  Company Number: US-BIOVITRUM-2019US0023

PATIENT
  Sex: Female

DRUGS (2)
  1. ORFADIN [Suspect]
     Active Substance: NITISINONE
     Route: 048
     Dates: start: 20180313
  2. ORFADIN [Suspect]
     Active Substance: NITISINONE
     Indication: TYROSINAEMIA
     Route: 048
     Dates: start: 20140502

REACTIONS (2)
  - Dyspnoea [Unknown]
  - Abdominal pain [Unknown]
